FAERS Safety Report 8258154-5 (Version None)
Quarter: 2012Q2

REPORT INFORMATION
  Report Type: 
  Country: None (occurrence: None)
  Receive Date: 20120404
  Receipt Date: 20120329
  Transmission Date: 20120825
  Serious: Yes (Hospitalization, Other)
  Sender: FDA-Public Use
  Company Number: PHHY2011US56803

PATIENT
  Sex: Male
  Weight: 71 kg

DRUGS (6)
  1. ASPIRIN [Concomitant]
  2. GLEEVEC [Suspect]
     Indication: CHRONIC MYELOID LEUKAEMIA
     Dosage: 200 MG, QD
     Route: 048
     Dates: start: 20080101, end: 20111001
  3. SIMVASTATIN [Concomitant]
  4. XANAX [Concomitant]
  5. AMBIEN [Concomitant]
  6. COUMADIN [Concomitant]

REACTIONS (7)
  - NIGHT SWEATS [None]
  - CARDIAC FAILURE CONGESTIVE [None]
  - ORTHOPNOEA [None]
  - DYSPNOEA [None]
  - ANGINA PECTORIS [None]
  - CEREBROVASCULAR ACCIDENT [None]
  - DISCOMFORT [None]
